FAERS Safety Report 24114617 (Version 1)
Quarter: 2024Q3

REPORT INFORMATION
  Report Type: Spontaneous
  Country: GB (occurrence: GB)
  Receive Date: 20240720
  Receipt Date: 20240720
  Transmission Date: 20241016
  Serious: Yes (Other)
  Sender: ASCEND
  Company Number: GB-Ascend Therapeutics US, LLC-2159373

PATIENT
  Sex: Female

DRUGS (2)
  1. ESTROGEL [Suspect]
     Active Substance: ESTRADIOL
     Indication: Menopause
     Route: 065
  2. ESTRADIOL [Suspect]
     Active Substance: ESTRADIOL
     Route: 065

REACTIONS (1)
  - Solar dermatitis [Not Recovered/Not Resolved]
